FAERS Safety Report 21272088 (Version 1)
Quarter: 2022Q3

REPORT INFORMATION
  Report Type: Spontaneous
  Country: US (occurrence: US)
  Receive Date: 20220830
  Receipt Date: 20220830
  Transmission Date: 20221027
  Serious: Yes (Other)
  Sender: FDA-Public Use
  Company Number: US-AMERICAN REGENT INC-2022000664

PATIENT
  Age: 45 Year
  Sex: Female
  Weight: 77.098 kg

DRUGS (27)
  1. FERRIC CARBOXYMALTOSE [Suspect]
     Active Substance: FERRIC CARBOXYMALTOSE
     Indication: Iron deficiency anaemia
     Dosage: 750 MILLIGRAM IN 100 ML 0.9% SODIUM CHLORIDE, SINGLE
     Route: 042
     Dates: start: 20181221, end: 20181221
  2. FERRIC CARBOXYMALTOSE [Suspect]
     Active Substance: FERRIC CARBOXYMALTOSE
     Dosage: 750 MILLIGRAM IN 100 ML 0.9% SODIUM CHLORIDE, SINGLE
     Route: 042
     Dates: start: 20181228, end: 20181228
  3. SOLU-CORTEF [Concomitant]
     Active Substance: HYDROCORTISONE SODIUM SUCCINATE
     Indication: Premedication
     Dosage: 100 MILLIGRAM, SINGLE
     Route: 042
     Dates: start: 20181221, end: 20181221
  4. SOLU-CORTEF [Concomitant]
     Active Substance: HYDROCORTISONE SODIUM SUCCINATE
     Dosage: 100 MILLIGRAM, SINGLE
     Route: 042
     Dates: start: 20181228, end: 20181228
  5. TYLENOL [Concomitant]
     Active Substance: ACETAMINOPHEN
     Indication: Premedication
     Dosage: 650 MILLIGRAM, SINGLE
     Route: 048
     Dates: start: 20181221, end: 20181221
  6. TYLENOL [Concomitant]
     Active Substance: ACETAMINOPHEN
     Dosage: 650 MILLIGRAM, SINGLE
     Route: 048
     Dates: start: 20181228, end: 20181228
  7. BENADRYL [Concomitant]
     Active Substance: DIPHENHYDRAMINE HYDROCHLORIDE
     Indication: Premedication
     Dosage: 25 MILLIGRAM, SINGLE
     Route: 042
     Dates: start: 20181221, end: 20181221
  8. BENADRYL [Concomitant]
     Active Substance: DIPHENHYDRAMINE HYDROCHLORIDE
     Dosage: 25 MILLIGRAM, SINGLE
     Route: 042
     Dates: start: 20181228, end: 20181228
  9. FERROUS SULFATE [Concomitant]
     Active Substance: FERROUS SULFATE
     Indication: Iron deficiency anaemia
     Dosage: 325 MILLIGRAM, BID
     Route: 048
     Dates: start: 201805
  10. NEURONTIN [Concomitant]
     Active Substance: GABAPENTIN
     Indication: Hypoaesthesia
     Dosage: 300 MILLIGRAM, TID
     Route: 048
     Dates: start: 201301
  11. ELAVIL [Concomitant]
     Active Substance: AMITRIPTYLINE HYDROCHLORIDE
     Indication: Product used for unknown indication
     Dosage: 50 MILLIGRAM AT BEDTIME
     Route: 048
  12. SYMBICORT [Concomitant]
     Active Substance: BUDESONIDE\FORMOTEROL FUMARATE DIHYDRATE
     Indication: Asthma
     Dosage: 2 PUFFS, BID
  13. FLONASE [Concomitant]
     Active Substance: FLUTICASONE PROPIONATE
     Indication: Seasonal allergy
     Dosage: 1 SPRAY EACH NOSTRIL ONCE DAILY
     Route: 045
  14. SPIRIVA [Concomitant]
     Active Substance: TIOTROPIUM BROMIDE MONOHYDRATE
     Indication: Asthma
     Dosage: ONCE DAILY
  15. FLEXERIL [Concomitant]
     Active Substance: CYCLOBENZAPRINE HYDROCHLORIDE
     Indication: Product used for unknown indication
     Dosage: 10 MILLIGRAM, BID
     Route: 048
  16. SINGULAIR [Concomitant]
     Active Substance: MONTELUKAST SODIUM
     Indication: Asthma
     Dosage: 10 MILLIGRAM, QD
     Route: 048
  17. ZADITOR [KETOTIFEN] [Concomitant]
     Indication: Product used for unknown indication
     Dosage: 1 DROP BOTH EYES, BID
     Route: 047
  18. ZYRTEC [Concomitant]
     Active Substance: CETIRIZINE HYDROCHLORIDE
     Indication: Product used for unknown indication
     Dosage: 10 MILLIGRAM AT BEDTIME
     Route: 048
  19. ASTELIN [Concomitant]
     Active Substance: AZELASTINE HYDROCHLORIDE
     Indication: Rhinorrhoea
     Dosage: 1 SPRAY INTO NOSTRILS BID AS NEEDED
     Route: 045
  20. EPIPEN [Concomitant]
     Active Substance: EPINEPHRINE
     Indication: Wheezing
     Dosage: 0.3MG/0.3ML, INJECT 0.3 ML ONCE PRN
     Route: 030
  21. EPIPEN [Concomitant]
     Active Substance: EPINEPHRINE
     Indication: Dyspnoea
  22. SENNOSIDES [Concomitant]
     Active Substance: SENNOSIDES
     Indication: Product used for unknown indication
     Dosage: 8.6 MILLIGRAM, QD
     Route: 048
  23. NAPROSYN [Concomitant]
     Active Substance: NAPROXEN
     Indication: Pain
     Dosage: 500 MILLIGRAM Q12H PRN
     Route: 048
  24. PROAIR HFA [Concomitant]
     Active Substance: ALBUTEROL SULFATE
     Indication: Dyspnoea
     Dosage: 2 PUFFS Q4H PRN
  25. PROAIR HFA [Concomitant]
     Active Substance: ALBUTEROL SULFATE
     Indication: Wheezing
  26. PROVENTIL [Concomitant]
     Active Substance: ALBUTEROL
     Indication: Dyspnoea
     Dosage: 2.5MG/3ML, 3 ML Q4H PRN
  27. PROVENTIL [Concomitant]
     Active Substance: ALBUTEROL
     Indication: Wheezing

REACTIONS (4)
  - Hypophosphataemia [Unknown]
  - Myalgia [Not Recovered/Not Resolved]
  - Oropharyngeal pain [Recovered/Resolved]
  - Arthralgia [Not Recovered/Not Resolved]

NARRATIVE: CASE EVENT DATE: 20181201
